FAERS Safety Report 5127766-X (Version None)
Quarter: 2006Q4

REPORT INFORMATION
  Report Type: 
  Country: None (occurrence: None)
  Receive Date: 20061016
  Receipt Date: 20061003
  Transmission Date: 20070319
  Serious: Yes (Life-Threatening, Other)
  Sender: FDA-Public Use
  Company Number: FR-BRISTOL-MYERS SQUIBB COMPANY-13535711

PATIENT
  Age: 73 Year
  Sex: Male
  Weight: 69 kg

DRUGS (5)
  1. HYDREA [Suspect]
     Indication: CHRONIC MYELOID LEUKAEMIA
     Route: 048
     Dates: start: 19961018, end: 20010101
  2. BUSULFAN [Suspect]
     Indication: CHRONIC MYELOID LEUKAEMIA
     Dates: start: 19970307, end: 19970310
  3. MELPHALAN [Suspect]
     Indication: CHRONIC MYELOID LEUKAEMIA
     Dates: start: 19970311, end: 19970311
  4. INTERFERON ALFA-2A [Suspect]
     Indication: CHRONIC MYELOID LEUKAEMIA
     Dates: start: 19961029, end: 19990114
  5. GLEEVEC [Suspect]
     Indication: CHRONIC MYELOID LEUKAEMIA
     Dosage: 11-JAN-2001 - DEC 2005: DOSE VARIED 300-600MG/DAY
     Dates: start: 20010111

REACTIONS (3)
  - PROSTATE CANCER [None]
  - PROSTATIC DISORDER [None]
  - PROSTATIC SPECIFIC ANTIGEN INCREASED [None]
